FAERS Safety Report 8834676 (Version 2)
Quarter: 2012Q4

REPORT INFORMATION
  Report Type: Spontaneous
  Country: US (occurrence: None)
  Receive Date: 20120920
  Receipt Date: 20121009
  Transmission Date: 20130627
  Serious: Yes (Death)
  Sender: FDA-Public Use
  Company Number: 2012PROUSA01971

PATIENT
  Age: 61 Year
  Sex: Male
  Weight: 137.4 kg

DRUGS (16)
  1. PROVENGE (SIPULEUCEL-T) SUSPENSION, 250ML [Suspect]
     Indication: PROSTATE CANCER METASTATIC
     Dosage: 250 ml, single, intravenous
     Route: 042
     Dates: start: 20120823, end: 20120823
  2. TAMSULOSIN (TAMSULOSIN) [Concomitant]
  3. B12 (CYANOCOBALAMIN-TANNIN COMPLEX) [Concomitant]
  4. ATORVASTATIN (ATORVASTATIN CALCIUM) [Concomitant]
  5. SYNTHROID (LEVOTHYROXINE SODIUM) [Concomitant]
  6. CLARITIN (LORATADINE) [Concomitant]
  7. HEMOCYTE (FERROUS FUMARATE) [Concomitant]
  8. FOLIC ACID (FOLIC ACID) [Concomitant]
  9. METFORMIN (METFORMIN HYDROCHLORIDE) [Concomitant]
  10. NEXIUM (ESOMEPRAZOLE MAGNESIUM) [Concomitant]
  11. MESALAMINE (MESALAZINE) [Concomitant]
  12. LOSARTAN (LOSARTAN POTASSIUM) [Concomitant]
  13. ACTOS (PIOGLITAZONE HYDROCHLORIDE) [Concomitant]
  14. TOPROL (METOPROLOL SUCCINATE) [Concomitant]
  15. LUPRON (LEUPROELIN ACETATE) [Concomitant]
  16. ASPIRIN (ACETYLSALICYLIC ACID) [Concomitant]

REACTIONS (1)
  - Respiratory distress [None]
